FAERS Safety Report 16026488 (Version 1)
Quarter: 2019Q1

REPORT INFORMATION
  Report Type: Spontaneous
  Country: US (occurrence: US)
  Receive Date: 20190302
  Receipt Date: 20190302
  Transmission Date: 20190418
  Serious: No
  Sender: FDA-Public Use
  Company Number: US-NOVOPROD-630404

PATIENT
  Sex: Male

DRUGS (2)
  1. VICTOZA [Suspect]
     Active Substance: LIRAGLUTIDE
     Dosage: 1.2 MG, UNK
     Route: 058
  2. VICTOZA [Suspect]
     Active Substance: LIRAGLUTIDE
     Indication: PRODUCT USED FOR UNKNOWN INDICATION
     Dosage: UNK
     Route: 058

REACTIONS (2)
  - Nausea [Unknown]
  - Weight increased [Unknown]
